FAERS Safety Report 11446906 (Version 1)
Quarter: 2015Q3

REPORT INFORMATION
  Report Type: Spontaneous
  Country: US (occurrence: US)
  Receive Date: 20150831
  Receipt Date: 20150831
  Transmission Date: 20151125
  Serious: No
  Sender: FDA-Public Use
  Company Number: US-ELI_LILLY_AND_COMPANY-US200901000421

PATIENT
  Sex: Female

DRUGS (2)
  1. KLONOPIN [Concomitant]
     Active Substance: CLONAZEPAM
  2. CYMBALTA [Suspect]
     Active Substance: DULOXETINE HYDROCHLORIDE
     Indication: DEPRESSION
     Dosage: 60 MG, 2/D

REACTIONS (6)
  - Hyperhidrosis [Unknown]
  - Dry mouth [Unknown]
  - Drug ineffective [Unknown]
  - Fatigue [Unknown]
  - Dysgeusia [Unknown]
  - Productive cough [Unknown]
